FAERS Safety Report 6294347-4 (Version None)
Quarter: 2009Q3

REPORT INFORMATION
  Report Type: 
  Country: None (occurrence: None)
  Receive Date: 20090803
  Receipt Date: 20090802
  Transmission Date: 20100115
  Serious: Yes (Hospitalization)
  Sender: FDA-Public Use
  Company Number: US-PFIZER INC-2008020587

PATIENT
  Sex: Female

DRUGS (3)
  1. NARDIL [Suspect]
  2. KLONOPIN [Concomitant]
  3. MARCAINE [Concomitant]

REACTIONS (2)
  - RIB FRACTURE [None]
  - VISION BLURRED [None]
